FAERS Safety Report 17427643 (Version 2)
Quarter: 2020Q1

REPORT INFORMATION
  Report Type: Spontaneous
  Country: US (occurrence: US)
  Receive Date: 20200218
  Receipt Date: 20200320
  Transmission Date: 20200409
  Serious: No
  Sender: FDA-Public Use
  Company Number: US-BAYER-2020-028662

PATIENT
  Age: 66 Year
  Sex: Female

DRUGS (7)
  1. REPATHA [Concomitant]
     Active Substance: EVOLOCUMAB
  2. UBIQUINOL [Concomitant]
     Active Substance: UBIQUINOL
  3. ALEVE [Suspect]
     Active Substance: NAPROXEN SODIUM
     Indication: PAIN
     Dosage: 1 DF
     Route: 048
     Dates: start: 20200216
  4. BIOTIN [Concomitant]
     Active Substance: BIOTIN
  5. PROBIOTIC [BIFIDOBACTERIUM BIFIDUM;BIFIDOBACTERIUM LACTIS;BIFIDOBA [Concomitant]
  6. MULTIVITAMINS;MINERALS [Concomitant]
  7. FLAXSEED OIL [LINUM USITATISSIMUM SEED OIL] [Concomitant]
     Active Substance: HERBALS\LINSEED OIL

REACTIONS (3)
  - Physical product label issue [None]
  - Abdominal distension [Not Recovered/Not Resolved]
  - Expired product administered [Unknown]

NARRATIVE: CASE EVENT DATE: 20200216
